FAERS Safety Report 6540418-4 (Version None)
Quarter: 2010Q1

REPORT INFORMATION
  Report Type: 
  Country: None (occurrence: None)
  Receive Date: 20100113
  Receipt Date: 20100105
  Transmission Date: 20100710
  Serious: Yes (Death)
  Sender: FDA-Public Use
  Company Number: KV200900716

PATIENT
  Age: 48 Year
  Sex: Female
  Weight: 63.5 kg

DRUGS (6)
  1. MORPHINE SULFATE [Suspect]
     Indication: BACK PAIN
     Dosage: 15 MG, BID, ORAL
     Route: 048
  2. MORPHINE SULFATE [Suspect]
     Indication: BACK PAIN
     Dosage: 30 MG, TID, ORAL
     Route: 048
  3. SEROQUEL [Concomitant]
  4. TRAZODONE [Concomitant]
  5. NORTRIPTYLINE [Concomitant]
  6. NEURONTIN [Concomitant]

REACTIONS (10)
  - ARTERIOSCLEROSIS CORONARY ARTERY [None]
  - CARDIAC DISORDER [None]
  - CARDIOMEGALY [None]
  - EMPHYSEMA [None]
  - NEPHROSCLEROSIS [None]
  - PULMONARY CONGESTION [None]
  - PULMONARY OEDEMA [None]
  - SCAR [None]
  - THERAPEUTIC AGENT TOXICITY [None]
  - UNRESPONSIVE TO STIMULI [None]
